FAERS Safety Report 14099485 (Version 2)
Quarter: 2018Q1

REPORT INFORMATION
  Report Type: Spontaneous
  Country: US (occurrence: US)
  Receive Date: 20171017
  Receipt Date: 20180112
  Transmission Date: 20180508
  Serious: No
  Sender: FDA-Public Use
  Company Number: US-ALKERMES INC.-ALK-2017-003315

PATIENT
  Age: 37 Year
  Sex: Female
  Weight: 53.52 kg

DRUGS (2)
  1. ARISTADA [Suspect]
     Active Substance: ARIPIPRAZOLE LAUROXIL
     Indication: SCHIZOPHRENIA
     Dosage: 882 MG, QMO
     Route: 030
     Dates: start: 20170728
  2. OTHER THERAPEUTIC PRODUCTS [Suspect]
     Active Substance: UNSPECIFIED INGREDIENT
     Indication: PRODUCT USED FOR UNKNOWN INDICATION

REACTIONS (8)
  - Somnolence [Not Recovered/Not Resolved]
  - Galactorrhoea [Unknown]
  - Apathy [Not Recovered/Not Resolved]
  - Fatigue [Recovered/Resolved]
  - Injection site nodule [Recovered/Resolved]
  - Injection site induration [Recovered/Resolved]
  - Injection site pain [Recovered/Resolved]
  - Blood prolactin increased [Unknown]

NARRATIVE: CASE EVENT DATE: 2017
